APPROVED DRUG PRODUCT: LIGNOSPAN STANDARD
Active Ingredient: EPINEPHRINE BITARTRATE; LIDOCAINE HYDROCHLORIDE
Strength: EQ 0.01MG BASE/ML;2%
Dosage Form/Route: INJECTABLE;INJECTION
Application: A088390 | Product #001
Applicant: DEPROCO INC
Approved: Jan 22, 1985 | RLD: Yes | RS: Yes | Type: RX